FAERS Safety Report 8790528 (Version 1)
Quarter: 2012Q4

REPORT INFORMATION
  Report Type: Spontaneous
  Country: US (occurrence: None)
  Receive Date: 20120912
  Receipt Date: 20120912
  Transmission Date: 20130627
  Serious: No
  Sender: FDA-Public Use
  Company Number: None

PATIENT
  Age: 72 Year
  Sex: Male
  Weight: 86.36 kg

DRUGS (3)
  1. ACETYLCYSTEINE [Suspect]
     Indication: CT SCAN
     Route: 048
     Dates: start: 20120814, end: 20120814
  2. ACETYLCYSTEINE [Suspect]
     Indication: PROPHYLAXIS
     Route: 048
     Dates: start: 20120814, end: 20120814
  3. ACETYLCYSTEINE [Suspect]
     Indication: RENAL DISORDER
     Route: 048
     Dates: start: 20120814, end: 20120814

REACTIONS (2)
  - Pain in jaw [None]
  - Toothache [None]
